FAERS Safety Report 7465611-8 (Version None)
Quarter: 2011Q2

REPORT INFORMATION
  Report Type: 
  Country: None (occurrence: None)
  Receive Date: 20110509
  Receipt Date: 20110504
  Transmission Date: 20111010
  Serious: Yes (Death)
  Sender: FDA-Public Use
  Company Number: BR-ASTRAZENECA-2011SE25870

PATIENT
  Age: 748 Month
  Sex: Male

DRUGS (5)
  1. SEROQUEL [Suspect]
     Indication: RESTLESSNESS
     Route: 048
     Dates: start: 20110201
  2. PAROXETINE HYDROCHLORIDE [Concomitant]
     Route: 048
  3. MIRTAZAPINE [Concomitant]
     Route: 048
  4. RISPERIDONE [Concomitant]
     Route: 048
  5. REMERON [Concomitant]
     Route: 048

REACTIONS (3)
  - DISORIENTATION [None]
  - DEATH [None]
  - OFF LABEL USE [None]
